FAERS Safety Report 5961901-6 (Version None)
Quarter: 2008Q4

REPORT INFORMATION
  Report Type: 
  Country: None (occurrence: None)
  Receive Date: 20081121
  Receipt Date: 20081114
  Transmission Date: 20090506
  Serious: Yes (Other)
  Sender: FDA-Public Use
  Company Number: US-KINGPHARMUSA00001-K200801310

PATIENT
  Age: 72 Year
  Sex: Male

DRUGS (8)
  1. ALTACE [Suspect]
     Route: 048
  2. FELODIPINE [Suspect]
     Route: 048
  3. GLURENORM [Concomitant]
     Indication: DIABETES MELLITUS
  4. CARVEDILOL [Concomitant]
     Dosage: 25 MG, UNK
  5. ACETYLSALICYLIC ACID SRT [Concomitant]
     Dosage: 80 MG, UNK
  6. XANAX [Concomitant]
     Dosage: 0.5 MG, UNK
  7. LIPITOR [Concomitant]
     Dosage: 10 MG, UNK
  8. OMEPRAZOLE [Concomitant]

REACTIONS (5)
  - ABASIA [None]
  - ACTIVITIES OF DAILY LIVING IMPAIRED [None]
  - INSOMNIA [None]
  - PAIN [None]
  - PARKINSONISM [None]
